FAERS Safety Report 6440066-0 (Version None)
Quarter: 2009Q4

REPORT INFORMATION
  Report Type: 
  Country: None (occurrence: None)
  Receive Date: 20091113
  Receipt Date: 20091030
  Transmission Date: 20100525
  Serious: Yes (Hospitalization)
  Sender: FDA-Public Use
  Company Number: FR-GENENTECH-293609

PATIENT
  Sex: Female

DRUGS (5)
  1. AVASTIN [Suspect]
     Indication: OLIGODENDROGLIOMA
     Dosage: 570 MG, UNK
     Route: 042
     Dates: start: 20090716, end: 20090826
  2. CAMPTOSAR [Suspect]
     Indication: OLIGODENDROGLIOMA
     Dosage: 195 MG, UNK
     Route: 042
     Dates: start: 20090604, end: 20090826
  3. ATROPINE [Suspect]
     Indication: PREMEDICATION
     Dosage: 0.25 MG, UNK
     Route: 058
     Dates: start: 20090604, end: 20090826
  4. METHYLPREDNISOLONE 4MG TAB [Suspect]
     Indication: DRUG USE FOR UNKNOWN INDICATION
     Dosage: UNK
     Route: 065
  5. ZOPHREN [Suspect]
     Indication: DRUG USE FOR UNKNOWN INDICATION
     Route: 065

REACTIONS (3)
  - ALANINE AMINOTRANSFERASE INCREASED [None]
  - ASPARTATE AMINOTRANSFERASE INCREASED [None]
  - GAMMA-GLUTAMYLTRANSFERASE INCREASED [None]
